FAERS Safety Report 8965128 (Version 1)
Quarter: 2012Q4

REPORT INFORMATION
  Report Type: 
  Country: GR (occurrence: GR)
  Receive Date: 20121213
  Receipt Date: 20121213
  Transmission Date: 20130627
  Serious: Yes (Death, Other)
  Sender: FDA-Public Use
  Company Number: PHHY2012GR114365

PATIENT

DRUGS (4)
  1. MEROPENEM [Suspect]
     Dosage: 2 g, TID
  2. FOSFOMYCIN [Suspect]
     Dosage: 8 g, TID
  3. COLISTIN [Concomitant]
     Dosage: 150000 IU/kg, per day
  4. GENTAMICIN [Concomitant]
     Dosage: 240 mg, QD

REACTIONS (5)
  - Klebsiella bacteraemia [Fatal]
  - Enterococcal bacteraemia [Fatal]
  - Candidiasis [Fatal]
  - Drug resistance [Unknown]
  - Pyrexia [Unknown]
